FAERS Safety Report 7760261-8 (Version None)
Quarter: 2011Q3

REPORT INFORMATION
  Report Type: 
  Country: None (occurrence: None)
  Receive Date: 20110919
  Receipt Date: 20110914
  Transmission Date: 20111222
  Serious: Yes (Hospitalization)
  Sender: FDA-Public Use
  Company Number: FR-GLAXOSMITHKLINE-B0747211A

PATIENT
  Sex: Female

DRUGS (1)
  1. PAROXETINE HCL [Suspect]
     Indication: DEPRESSION
     Route: 048
     Dates: start: 20110821, end: 20110823

REACTIONS (6)
  - CONVULSION [None]
  - MYOCARDIAL INFARCTION [None]
  - SEROTONIN SYNDROME [None]
  - COMA [None]
  - HALLUCINATION, VISUAL [None]
  - RESPIRATORY DISTRESS [None]
